FAERS Safety Report 25425802 (Version 2)
Quarter: 2025Q3

REPORT INFORMATION
  Report Type: Report from Study
  Country: US (occurrence: US)
  Receive Date: 20250611
  Receipt Date: 20250815
  Transmission Date: 20251020
  Serious: Yes (Other)
  Sender: MALLINCKRODT
  Company Number: US-MALLINCKRODT-MNK202405905

PATIENT
  Age: 73 Year
  Sex: Female

DRUGS (11)
  1. CORTICOTROPIN [Suspect]
     Active Substance: CORTICOTROPIN
     Indication: Scleritis
     Route: 058
     Dates: start: 20240822, end: 2024
  2. CORTICOTROPIN [Suspect]
     Active Substance: CORTICOTROPIN
     Indication: Rheumatoid arthritis
     Dates: start: 2024, end: 2024
  3. CORTICOTROPIN [Suspect]
     Active Substance: CORTICOTROPIN
     Dates: start: 2024
  4. CORTICOTROPIN [Suspect]
     Active Substance: CORTICOTROPIN
  5. PREDNISONE [Suspect]
     Active Substance: PREDNISONE
     Indication: Product used for unknown indication
     Dates: start: 20240822
  6. PREDNISONE [Suspect]
     Active Substance: PREDNISONE
     Dates: start: 2024, end: 2024
  7. PREDNISONE [Suspect]
     Active Substance: PREDNISONE
     Dates: start: 2024
  8. PREDNISONE [Suspect]
     Active Substance: PREDNISONE
  9. PREDNISONE [Suspect]
     Active Substance: PREDNISONE
  10. PLAVIX [Concomitant]
     Active Substance: CLOPIDOGREL BISULFATE
  11. RITUXAN [Concomitant]
     Active Substance: RITUXIMAB

REACTIONS (12)
  - Scleritis [Recovering/Resolving]
  - Condition aggravated [Recovering/Resolving]
  - Sarcoidosis [Unknown]
  - Blood glucose increased [Recovering/Resolving]
  - Adrenocortical insufficiency acute [Unknown]
  - Restlessness [Recovered/Resolved]
  - Agitation [Recovered/Resolved]
  - Contusion [Unknown]
  - Insomnia [Unknown]
  - Diarrhoea [Not Recovered/Not Resolved]
  - Depression [Not Recovered/Not Resolved]
  - Therapy non-responder [Not Recovered/Not Resolved]

NARRATIVE: CASE EVENT DATE: 20240101
